FAERS Safety Report 5515813-2 (Version None)
Quarter: 2007Q4

REPORT INFORMATION
  Report Type: 
  Country: None (occurrence: None)
  Receive Date: 20071109
  Receipt Date: 20071107
  Transmission Date: 20080405
  Serious: Yes (Death, Other)
  Sender: FDA-Public Use
  Company Number: 2007SP021401

PATIENT
  Age: 71 Year
  Sex: Male
  Weight: 48 kg

DRUGS (8)
  1. TEMODAL [Suspect]
     Indication: GASTROINTESTINAL DISORDER
     Dosage: 110 MG; QD, 300 MG; QD; PO
     Route: 048
     Dates: start: 20070627, end: 20070807
  2. TEMODAL [Suspect]
     Indication: GLIOBLASTOMA
     Dosage: 110 MG; QD, 300 MG; QD; PO
     Route: 048
     Dates: start: 20070627, end: 20070807
  3. TEMODAL [Suspect]
     Indication: GASTROINTESTINAL DISORDER
     Dosage: 110 MG; QD, 300 MG; QD; PO
     Route: 048
     Dates: start: 20070910, end: 20070914
  4. TEMODAL [Suspect]
     Indication: GLIOBLASTOMA
     Dosage: 110 MG; QD, 300 MG; QD; PO
     Route: 048
     Dates: start: 20070910, end: 20070914
  5. ONDANSETRON HCL [Suspect]
     Indication: PROPHYLAXIS
     Dosage: 8 MG; QD; PO
     Route: 048
     Dates: start: 20070910, end: 20070914
  6. BACTRIM DS [Concomitant]
  7. DEPAKINE CHRONO [Concomitant]
  8. MOTILIUM [Concomitant]

REACTIONS (7)
  - COMA [None]
  - DRUG INTERACTION POTENTIATION [None]
  - DRUG RESISTANCE [None]
  - DYSGEUSIA [None]
  - EPILEPSY [None]
  - LEUKOPENIA [None]
  - LYMPHOPENIA [None]
